FAERS Safety Report 25376841 (Version 2)
Quarter: 2025Q3

REPORT INFORMATION
  Report Type: Spontaneous
  Country: BR (occurrence: BR)
  Receive Date: 20250530
  Receipt Date: 20250826
  Transmission Date: 20251020
  Serious: Yes (Hospitalization, Other)
  Sender: NOVO NORDISK
  Company Number: BR-NOVOPROD-1439642

PATIENT
  Age: 30 Year
  Sex: Female
  Weight: 98.5 kg

DRUGS (5)
  1. WEGOVY [Suspect]
     Active Substance: SEMAGLUTIDE
     Indication: Obesity
     Route: 058
     Dates: start: 202411
  2. WEGOVY [Suspect]
     Active Substance: SEMAGLUTIDE
     Indication: Hepatic steatosis
     Dosage: 2.4 MG, QW
     Route: 058
     Dates: start: 20250314, end: 20250512
  3. VENLAFAXINE [Concomitant]
     Active Substance: VENLAFAXINE HYDROCHLORIDE
     Indication: Mental disorder
  4. BUPROPION [Concomitant]
     Active Substance: BUPROPION
     Indication: Mental disorder
  5. ROSUVASTATIN [Concomitant]
     Active Substance: ROSUVASTATIN
     Indication: Mental disorder

REACTIONS (1)
  - Pancreatitis acute [Recovered/Resolved]

NARRATIVE: CASE EVENT DATE: 20250516
